FAERS Safety Report 16915029 (Version 1)
Quarter: 2019Q4

REPORT INFORMATION
  Report Type: Spontaneous
  Country: US (occurrence: US)
  Receive Date: 20190821
  Receipt Date: 20190821
  Transmission Date: 20200122
  Serious: Yes (Hospitalization)
  Sender: FDA-Public Use
  Company Number: None

PATIENT
  Age: 69 Year
  Sex: Male

DRUGS (2)
  1. LITHIUM. [Suspect]
     Active Substance: LITHIUM
     Indication: BIPOLAR DISORDER
     Route: 048
     Dates: start: 20190122, end: 20190522
  2. LITHIUM. [Suspect]
     Active Substance: LITHIUM
     Indication: MANIA
     Route: 048
     Dates: start: 20190122, end: 20190522

REACTIONS (1)
  - Tremor [None]

NARRATIVE: CASE EVENT DATE: 20190528
